FAERS Safety Report 7592185-3 (Version None)
Quarter: 2011Q3

REPORT INFORMATION
  Report Type: 
  Country: None (occurrence: None)
  Receive Date: 20110705
  Receipt Date: 20110705
  Transmission Date: 20111222
  Serious: Yes (Other)
  Sender: FDA-Public Use
  Company Number: None

PATIENT
  Age: 15 Year
  Sex: Female
  Weight: 58.9676 kg

DRUGS (1)
  1. EPIDUO [Suspect]
     Indication: ACNE
     Dosage: FILM APPLICATION TO FACE ONCE PER DAY TOP
     Route: 061
     Dates: start: 20110411, end: 20110630

REACTIONS (3)
  - VERTIGO [None]
  - ALOPECIA [None]
  - HEADACHE [None]
